FAERS Safety Report 11330721 (Version 1)
Quarter: 2015Q3

REPORT INFORMATION
  Report Type: Spontaneous
  Country: US (occurrence: None)
  Receive Date: 20150731
  Receipt Date: 20150731
  Transmission Date: 20151125
  Serious: No
  Sender: FDA-Public Use
  Company Number: None

PATIENT
  Age: 52 Year
  Sex: Male

DRUGS (14)
  1. FENTANYL. [Suspect]
     Active Substance: FENTANYL
     Indication: PAIN
     Dosage: 8 MG CONTINUOUS
     Route: 042
     Dates: start: 20141115, end: 20141116
  2. ACYCLOVIR. [Concomitant]
     Active Substance: ACYCLOVIR
  3. ALBUTEROL. [Concomitant]
     Active Substance: ALBUTEROL
  4. PROPOFOL. [Concomitant]
     Active Substance: PROPOFOL
  5. CISATRACURIUM. [Concomitant]
     Active Substance: CISATRACURIUM
  6. INSULIN [Concomitant]
     Active Substance: INSULIN NOS
  7. NOREPINEPHRINE [Concomitant]
     Active Substance: NOREPINEPHRINE\NOREPINEPHRINE BITARTRATE
  8. FAMOTIDINE. [Concomitant]
     Active Substance: FAMOTIDINE
  9. HEPARIN [Concomitant]
     Active Substance: HEPARIN SODIUM
  10. VANCOMYCIN [Concomitant]
     Active Substance: VANCOMYCIN
  11. AZITHROMYCIN [Concomitant]
     Active Substance: AZITHROMYCIN ANHYDROUS
  12. CEFEPIME [Concomitant]
     Active Substance: CEFEPIME HYDROCHLORIDE
  13. METHYLPREDNISOLONE. [Concomitant]
     Active Substance: METHYLPREDNISOLONE
  14. PHYTONADIONE. [Concomitant]
     Active Substance: PHYTONADIONE

REACTIONS (2)
  - Depressed level of consciousness [None]
  - Sedation [None]

NARRATIVE: CASE EVENT DATE: 20141115
